FAERS Safety Report 10943563 (Version 2)
Quarter: 2015Q2

REPORT INFORMATION
  Report Type: Spontaneous
  Country: US (occurrence: US)
  Receive Date: 20150322
  Receipt Date: 20150526
  Transmission Date: 20150821
  Serious: No
  Sender: FDA-Public Use
  Company Number: US-JNJFOC-20140802425

PATIENT
  Age: 54 Year
  Sex: Female
  Weight: 109.77 kg

DRUGS (1)
  1. RISPERDAL CONSTA [Suspect]
     Active Substance: RISPERIDONE
     Indication: PRODUCT USED FOR UNKNOWN INDICATION
     Route: 030
     Dates: start: 201109

REACTIONS (4)
  - Device occlusion [Unknown]
  - Needle issue [Unknown]
  - Device malfunction [Unknown]
  - Pain [Unknown]

NARRATIVE: CASE EVENT DATE: 20140731
